FAERS Safety Report 18665856 (Version 5)
Quarter: 2021Q3

REPORT INFORMATION
  Report Type: Spontaneous
  Country: JP (occurrence: JP)
  Receive Date: 20201226
  Receipt Date: 20210827
  Transmission Date: 20211014
  Serious: Yes (Hospitalization, Other)
  Sender: FDA-Public Use
  Company Number: JP-GLAXOSMITHKLINE-JP2020JPN252713

PATIENT
  Age: 83 Year
  Sex: Male
  Weight: 60 kg

DRUGS (9)
  1. METHYCOBAL [Concomitant]
     Active Substance: METHYLCOBALAMIN
     Indication: NEUROPATHY PERIPHERAL
     Dosage: 500 ?G, TID
     Dates: start: 20200101, end: 20200104
  2. ZOPICLONE [Concomitant]
     Active Substance: ZOPICLONE
     Dosage: UNK
  3. VALTREX [Suspect]
     Active Substance: VALACYCLOVIR HYDROCHLORIDE
     Indication: FACIAL PARALYSIS
     Dosage: 1000 MG, TID
     Route: 048
     Dates: start: 20191227, end: 20200101
  4. ADENOSINE TRIPHOSPHATE DISODIUM HYDRATE [Concomitant]
     Indication: FACIAL PARALYSIS
     Dosage: 3 G
  5. METHYCOBAL [Concomitant]
     Active Substance: METHYLCOBALAMIN
     Indication: FACIAL PARALYSIS
  6. ESOMEPRAZOLE MAGNESIUM HYDRATE [Concomitant]
     Active Substance: ESOMEPRAZOLE MAGNESIUM
     Dosage: UNK
  7. METFORMIN HYDROCHLORIDE. [Concomitant]
     Active Substance: METFORMIN HYDROCHLORIDE
     Dosage: UNK
  8. ALPRAZOLAM. [Concomitant]
     Active Substance: ALPRAZOLAM
     Dosage: UNK
  9. OLOPATADINE HYDROCHLORIDE. [Concomitant]
     Active Substance: OLOPATADINE HYDROCHLORIDE
     Dosage: UNK

REACTIONS (12)
  - Fluid intake reduced [Recovered/Resolved]
  - Toxic encephalopathy [Recovered/Resolved]
  - Product use in unapproved indication [Unknown]
  - Off label use [Unknown]
  - Abnormal behaviour [Recovered/Resolved]
  - Dysgraphia [Unknown]
  - Depressed level of consciousness [Recovered/Resolved]
  - Nephropathy toxic [Recovered/Resolved]
  - Altered state of consciousness [Unknown]
  - Dehydration [Recovered/Resolved]
  - Renal impairment [Recovered/Resolved]
  - Urine output decreased [Recovering/Resolving]

NARRATIVE: CASE EVENT DATE: 20191231
